FAERS Safety Report 4956063-8 (Version None)
Quarter: 2006Q1

REPORT INFORMATION
  Report Type: 
  Country: None (occurrence: None)
  Receive Date: 20060328
  Receipt Date: 20050928
  Transmission Date: 20060701
  Serious: Yes (Hospitalization, Disabling, Other)
  Sender: FDA-Public Use
  Company Number: US-MERCK-0509USA04369

PATIENT
  Age: 45 Year
  Sex: Male
  Weight: 107 kg

DRUGS (7)
  1. VIOXX [Suspect]
     Indication: ARTHRITIS
     Route: 048
     Dates: start: 20030910, end: 20040829
  2. PREVACID [Concomitant]
     Route: 065
  3. GABITRIL [Concomitant]
     Route: 065
  4. NEURONTIN [Concomitant]
     Route: 065
  5. OFLOXACIN [Concomitant]
     Route: 065
  6. AMITRIPTYLINE HYDROCHLORIDE [Concomitant]
     Route: 065
  7. ENDOCET [Concomitant]
     Route: 065

REACTIONS (5)
  - ATROPHY [None]
  - BACK DISORDER [None]
  - CEREBROVASCULAR ACCIDENT [None]
  - FALL [None]
  - MYOCARDIAL INFARCTION [None]
